FAERS Safety Report 17882766 (Version 7)
Quarter: 2021Q4

REPORT INFORMATION
  Report Type: Spontaneous
  Country: GR (occurrence: GR)
  Receive Date: 20200611
  Receipt Date: 20211012
  Transmission Date: 20220304
  Serious: Yes (Hospitalization, Other)
  Sender: FDA-Public Use
  Company Number: GR-BIOGEN-2020BI00884494

PATIENT
  Age: 44 Year
  Sex: Female

DRUGS (19)
  1. TYSABRI [Suspect]
     Active Substance: NATALIZUMAB
     Indication: Relapsing-remitting multiple sclerosis
     Dosage: START DATE ABOUT 4 YEARS AGO
     Route: 042
     Dates: start: 2016
  2. TYSABRI [Suspect]
     Active Substance: NATALIZUMAB
     Route: 042
     Dates: start: 2016
  3. TYSABRI [Suspect]
     Active Substance: NATALIZUMAB
     Dosage: 300 MG, Q4WEEKS (LAST 4 YEARS)
     Route: 042
  4. TOPIRAMATE [Suspect]
     Active Substance: TOPIRAMATE
     Indication: Tremor
     Route: 048
     Dates: start: 2016
  5. TOPIRAMATE [Suspect]
     Active Substance: TOPIRAMATE
     Route: 048
     Dates: start: 2016
  6. TOPIRAMATE [Suspect]
     Active Substance: TOPIRAMATE
     Dosage: 50 MG, DAILY (LAST 4 YEARS)
     Route: 048
  7. TOPIRAMATE [Suspect]
     Active Substance: TOPIRAMATE
     Dosage: 100 MG, DAILY (LAST 4 YEARS)
     Route: 048
  8. BROMAZEPAM [Suspect]
     Active Substance: BROMAZEPAM
     Indication: Status epilepticus
     Dosage: QHS
     Route: 048
  9. BROMAZEPAM [Suspect]
     Active Substance: BROMAZEPAM
     Route: 048
     Dates: start: 2016
  10. BROMAZEPAM [Suspect]
     Active Substance: BROMAZEPAM
     Indication: Multiple sclerosis
     Dosage: 3MG Q1HR (LAST  4 YEARS)
     Route: 048
  11. LEVETIRACETAM [Suspect]
     Active Substance: LEVETIRACETAM
     Indication: Status epilepticus
     Route: 042
  12. MIDAZOLAM [Concomitant]
     Active Substance: MIDAZOLAM
     Indication: Sedation
     Route: 065
  13. FENTANYL [Concomitant]
     Active Substance: FENTANYL
     Indication: Sedation
     Route: 065
  14. PROPOFOL [Concomitant]
     Active Substance: PROPOFOL
     Indication: Sedation
     Route: 042
  15. REMIFENTANIL [Concomitant]
     Active Substance: REMIFENTANIL
     Indication: Sedation
     Route: 042
  16. CLINDAMYCIN [Concomitant]
     Active Substance: CLINDAMYCIN
     Indication: Prophylaxis against gastrointestinal ulcer
     Route: 042
  17. AMPICILLIN SODIUM\SULBACTAM SODIUM [Concomitant]
     Active Substance: AMPICILLIN SODIUM\SULBACTAM SODIUM
     Indication: Prophylaxis against gastrointestinal ulcer
     Route: 042
  18. METOPROLOL [Concomitant]
     Active Substance: METOPROLOL
     Indication: Tachycardia
     Route: 048
  19. AMIKACIN [Concomitant]
     Active Substance: AMIKACIN
     Indication: Product used for unknown indication
     Dosage: 10MG/KG
     Route: 042

REACTIONS (7)
  - Status epilepticus [Recovered/Resolved]
  - Metabolic acidosis [Recovered/Resolved]
  - Hyperpyrexia [Recovered/Resolved]
  - Body temperature increased [Recovered/Resolved]
  - White matter lesion [Unknown]
  - Pyrexia [Unknown]
  - Product use in unapproved indication [Unknown]

NARRATIVE: CASE EVENT DATE: 20200201
